FAERS Safety Report 12469322 (Version 3)
Quarter: 2016Q4

REPORT INFORMATION
  Report Type: Spontaneous
  Country: GB (occurrence: GB)
  Receive Date: 20160615
  Receipt Date: 20161021
  Transmission Date: 20170207
  Serious: Yes (Hospitalization)
  Sender: FDA-Public Use
  Company Number: GB-SA-2016SA109240

PATIENT
  Age: 67 Year
  Sex: Female
  Weight: 80 kg

DRUGS (22)
  1. CLEXANE [Suspect]
     Active Substance: ENOXAPARIN SODIUM
     Indication: PERIPHERAL EMBOLISM
     Dosage: 120 MG/ML
     Route: 058
     Dates: start: 20160317, end: 20160418
  2. CLEXANE [Suspect]
     Active Substance: ENOXAPARIN SODIUM
     Indication: PERIPHERAL EMBOLISM
     Dosage: 120 MG/ML
     Route: 058
     Dates: start: 20160317, end: 20160418
  3. CLEXANE [Suspect]
     Active Substance: ENOXAPARIN SODIUM
     Indication: PERIPHERAL EMBOLISM
     Dosage: 120 MG/ML
     Route: 058
     Dates: start: 20160317, end: 20160418
  4. CLEXANE [Suspect]
     Active Substance: ENOXAPARIN SODIUM
     Indication: PERIPHERAL EMBOLISM
     Dosage: 120 MG/ML
     Route: 058
     Dates: start: 20160317, end: 20160418
  5. CIPROFLOXACIN. [Concomitant]
     Active Substance: CIPROFLOXACIN
     Route: 065
  6. LETROZOLE. [Concomitant]
     Active Substance: LETROZOLE
     Indication: BREAST CANCER
     Route: 065
     Dates: start: 20151006
  7. PARACETAMOL [Concomitant]
     Active Substance: ACETAMINOPHEN
     Route: 065
  8. PERJETA [Concomitant]
     Active Substance: PERTUZUMAB
     Route: 065
  9. HERCEPTIN [Concomitant]
     Active Substance: TRASTUZUMAB
     Indication: BREAST CANCER STAGE IV
     Route: 065
  10. DENOSUMAB [Concomitant]
     Active Substance: DENOSUMAB
     Indication: BONE DISORDER
     Dosage: EVERY 6 WEEKS
     Route: 065
  11. CLEXANE [Suspect]
     Active Substance: ENOXAPARIN SODIUM
     Indication: DEEP VEIN THROMBOSIS
     Dosage: 120 MG/ML
     Route: 058
     Dates: start: 20160317, end: 20160418
  12. CLEXANE [Suspect]
     Active Substance: ENOXAPARIN SODIUM
     Indication: DEEP VEIN THROMBOSIS
     Dosage: 120 MG/ML
     Route: 058
     Dates: start: 20160317, end: 20160418
  13. ADCAL-D3 [Concomitant]
     Active Substance: CALCIUM CARBONATE\CHOLECALCIFEROL
     Indication: BONE DISORDER
     Route: 065
     Dates: start: 20151006
  14. DOCETAXEL. [Concomitant]
     Active Substance: DOCETAXEL
     Indication: BREAST CANCER STAGE IV
     Route: 065
     Dates: start: 20160210
  15. CLEXANE [Suspect]
     Active Substance: ENOXAPARIN SODIUM
     Indication: PERIPHERAL EMBOLISM
     Dosage: 120 MG/ML
     Route: 058
     Dates: start: 20160317, end: 20160418
  16. CLEXANE [Suspect]
     Active Substance: ENOXAPARIN SODIUM
     Indication: DEEP VEIN THROMBOSIS
     Dosage: 120 MG/ML
     Route: 058
     Dates: start: 20160317, end: 20160418
  17. CLEXANE [Suspect]
     Active Substance: ENOXAPARIN SODIUM
     Indication: DEEP VEIN THROMBOSIS
     Dosage: 120 MG/ML
     Route: 058
     Dates: start: 20160317, end: 20160418
  18. PERTUZUMAB [Concomitant]
     Active Substance: PERTUZUMAB
     Indication: BREAST CANCER STAGE IV
     Route: 065
  19. OMEPRAZOLE. [Concomitant]
     Active Substance: OMEPRAZOLE
     Indication: PROPHYLAXIS
     Route: 065
     Dates: start: 20151006
  20. CLEXANE [Suspect]
     Active Substance: ENOXAPARIN SODIUM
     Indication: DEEP VEIN THROMBOSIS
     Dosage: 120 MG/ML
     Route: 058
     Dates: start: 20160317, end: 20160418
  21. MORPHINE [Concomitant]
     Active Substance: MORPHINE
     Route: 065
  22. ZOMORPH [Concomitant]
     Active Substance: MORPHINE SULFATE
     Route: 065

REACTIONS (13)
  - Skin haemorrhage [Recovering/Resolving]
  - Erythema multiforme [Recovering/Resolving]
  - Pain [Recovering/Resolving]
  - Dermatitis [Recovering/Resolving]
  - Protein deficiency [Unknown]
  - Rash erythematous [Recovering/Resolving]
  - Blister [Recovering/Resolving]
  - Skin erosion [Recovering/Resolving]
  - Stevens-Johnson syndrome [Recovering/Resolving]
  - Psoriasis [Not Recovered/Not Resolved]
  - Skin exfoliation [Recovered/Resolved with Sequelae]
  - Burning sensation [Recovering/Resolving]
  - Scab [Recovering/Resolving]

NARRATIVE: CASE EVENT DATE: 20160323
